FAERS Safety Report 5945274-0 (Version None)
Quarter: 2008Q4

REPORT INFORMATION
  Report Type: 
  Country: None (occurrence: None)
  Receive Date: 20081107
  Receipt Date: 20081027
  Transmission Date: 20090506
  Serious: Yes (Hospitalization)
  Sender: FDA-Public Use
  Company Number: DE-ELI_LILLY_AND_COMPANY-DE200810006099

PATIENT
  Age: 58 Year
  Sex: Female
  Weight: 92 kg

DRUGS (4)
  1. CYMBALTA [Suspect]
     Indication: PAIN
     Dosage: 60 MG, UNKNOWN
     Route: 065
     Dates: start: 20080514
  2. FLUOXETINE [Concomitant]
     Dosage: 40 MG, UNKNOWN
     Route: 065
     Dates: start: 20050101, end: 20080508
  3. FLUOXETINE [Concomitant]
     Dosage: 20 MG, UNKNOWN
     Route: 065
     Dates: start: 20080509, end: 20080514
  4. TRIMIPRAMINE MALEATE [Concomitant]
     Dosage: UNK, UNKNOWN
     Route: 065

REACTIONS (5)
  - CHEST DISCOMFORT [None]
  - HYPERHIDROSIS [None]
  - MUSCLE TWITCHING [None]
  - RESTLESSNESS [None]
  - TACHYCARDIA [None]
